FAERS Safety Report 10949342 (Version 1)
Quarter: 2015Q1

REPORT INFORMATION
  Report Type: Spontaneous
  Country: CA (occurrence: CA)
  Receive Date: 20150324
  Receipt Date: 20150324
  Transmission Date: 20150721
  Serious: Yes (Death)
  Sender: FDA-Public Use
  Company Number: CA-SA-2015SA034461

PATIENT
  Age: 48 Year

DRUGS (4)
  1. 5-FU [Suspect]
     Active Substance: FLUOROURACIL
     Route: 065
     Dates: start: 20140108, end: 20140903
  2. FOLINIC ACID [Suspect]
     Active Substance: LEUCOVORIN
     Route: 065
     Dates: start: 20140108, end: 20140903
  3. AVASTIN [Suspect]
     Active Substance: BEVACIZUMAB
     Indication: COLORECTAL CANCER METASTATIC
     Route: 065
     Dates: start: 20140108, end: 20140903
  4. OXALIPLATIN. [Suspect]
     Active Substance: OXALIPLATIN
     Route: 065
     Dates: start: 20140108, end: 20140903

REACTIONS (2)
  - Death [Fatal]
  - Neuropathy peripheral [Unknown]

NARRATIVE: CASE EVENT DATE: 2014
